FAERS Safety Report 16091823 (Version 1)
Quarter: 2019Q1

REPORT INFORMATION
  Report Type: Spontaneous
  Country: FR (occurrence: FR)
  Receive Date: 20190319
  Receipt Date: 20190319
  Transmission Date: 20190418
  Serious: Yes (Hospitalization)
  Sender: FDA-Public Use
  Company Number: FR-ELI_LILLY_AND_COMPANY-FR201903008276

PATIENT
  Age: 23 Year
  Sex: Female

DRUGS (6)
  1. MIRTAZAPINE. [Suspect]
     Active Substance: MIRTAZAPINE
     Indication: INTENTIONAL OVERDOSE
     Dosage: 90 MG, SINGLE
     Route: 048
     Dates: start: 20181115, end: 20181115
  2. DIAZEPAM. [Suspect]
     Active Substance: DIAZEPAM
     Indication: INTENTIONAL OVERDOSE
     Dosage: 410 MG, SINGLE
     Route: 048
     Dates: start: 20181115, end: 20181115
  3. FLUOXETINE HYDROCHLORIDE. [Suspect]
     Active Substance: FLUOXETINE HYDROCHLORIDE
     Indication: INTENTIONAL OVERDOSE
     Dosage: 280 MG, SINGLE
     Route: 048
     Dates: start: 20181115, end: 20181115
  4. MIANSERINE [MIANSERIN HYDROCHLORIDE] [Suspect]
     Active Substance: MIANSERIN HYDROCHLORIDE
     Indication: INTENTIONAL OVERDOSE
     Dosage: 150 MG, SINGLE
     Route: 048
     Dates: start: 20181115, end: 20181115
  5. TERALITHE [Suspect]
     Active Substance: LITHIUM CARBONATE
     Indication: INTENTIONAL OVERDOSE
     Dosage: 1200 MG, SINGLE
     Route: 048
     Dates: start: 20181115, end: 20181115
  6. PARACETAMOL [Concomitant]
     Active Substance: ACETAMINOPHEN
     Indication: PRODUCT USED FOR UNKNOWN INDICATION

REACTIONS (3)
  - Miosis [Recovered/Resolved]
  - Somnolence [Recovered/Resolved]
  - Disturbance in attention [Recovered/Resolved]

NARRATIVE: CASE EVENT DATE: 20181115
